FAERS Safety Report 23872859 (Version 2)
Quarter: 2024Q3

REPORT INFORMATION
  Report Type: Spontaneous
  Country: US (occurrence: None)
  Receive Date: 20240520
  Receipt Date: 20240705
  Transmission Date: 20241016
  Serious: No
  Sender: ASTRAZENECA
  Company Number: 2024A110014

PATIENT
  Sex: Female
  Weight: 103 kg

DRUGS (1)
  1. TEZEPELUMAB [Suspect]
     Active Substance: TEZEPELUMAB
     Indication: Asthma
     Route: 058

REACTIONS (2)
  - Dyspepsia [Recovered/Resolved]
  - Sensory disturbance [Recovered/Resolved]
